FAERS Safety Report 7402301-1 (Version None)
Quarter: 2011Q2

REPORT INFORMATION
  Report Type: 
  Country: None (occurrence: None)
  Receive Date: 20110408
  Receipt Date: 20110406
  Transmission Date: 20111010
  Serious: No
  Sender: FDA-Public Use
  Company Number: US-PFIZER INC-2011076419

PATIENT
  Sex: Male

DRUGS (6)
  1. ARGATROBAN [Suspect]
     Indication: ANTICOAGULANT THERAPY
     Dosage: UNK
     Route: 042
     Dates: start: 20110405
  2. LEVOTHYROXINE [Concomitant]
  3. FUROSEMIDE [Concomitant]
  4. MAGNESIUM [Concomitant]
  5. ASPIRIN [Concomitant]
  6. NIACIN [Concomitant]

REACTIONS (1)
  - ACTIVATED PARTIAL THROMBOPLASTIN TIME ABNORMAL [None]
